FAERS Safety Report 15781141 (Version 3)
Quarter: 2019Q1

REPORT INFORMATION
  Report Type: Spontaneous
  Country: BR (occurrence: BR)
  Receive Date: 20190102
  Receipt Date: 20190118
  Transmission Date: 20190417
  Serious: Yes (Hospitalization)
  Sender: FDA-Public Use
  Company Number: BR-SA-2018SA393495

PATIENT
  Sex: Male

DRUGS (1)
  1. LANTUS [Suspect]
     Active Substance: INSULIN GLARGINE
     Indication: DIABETES MELLITUS
     Dosage: 10 IU BEFORE SLEEPING
     Route: 058
     Dates: start: 20181217, end: 201812

REACTIONS (5)
  - Abdominal pain [Unknown]
  - Hypersensitivity [Not Recovered/Not Resolved]
  - Dehydration [Unknown]
  - Dizziness [Unknown]
  - Tonsillitis [Unknown]

NARRATIVE: CASE EVENT DATE: 20181217
